FAERS Safety Report 23648501 (Version 2)
Quarter: 2024Q1

REPORT INFORMATION
  Report Type: Spontaneous
  Country: PT (occurrence: PT)
  Receive Date: 20240319
  Receipt Date: 20240321
  Transmission Date: 20240410
  Serious: Yes (Hospitalization, Other)
  Sender: FDA-Public Use
  Company Number: PT-ARISTO PHARMA-LORA202403041

PATIENT
  Age: 19 Year
  Sex: Male

DRUGS (3)
  1. LORAZEPAM [Interacting]
     Active Substance: LORAZEPAM
     Dosage: 1 MG
     Route: 048
  2. TOPIRAMATE [Concomitant]
     Active Substance: TOPIRAMATE
     Dosage: 25 MG
  3. PAROXETINE [Concomitant]
     Active Substance: PAROXETINE
     Dosage: 20 MG

REACTIONS (6)
  - Drug abuse [Unknown]
  - Hypotension [Recovered/Resolved]
  - Tachycardia [Recovered/Resolved]
  - Alcohol interaction [Unknown]
  - Somnolence [Recovered/Resolved]
  - Suicide attempt [Unknown]
